FAERS Safety Report 7007007-9 (Version None)
Quarter: 2010Q3

REPORT INFORMATION
  Report Type: 
  Country: None (occurrence: None)
  Receive Date: 20100915
  Receipt Date: 20100910
  Transmission Date: 20110219
  Serious: Yes (Other)
  Sender: FDA-Public Use
  Company Number: A0880601A

PATIENT
  Age: 87 Year
  Sex: Male

DRUGS (1)
  1. UREA PEROXIDE [Suspect]
     Dosage: AURAL

REACTIONS (3)
  - DEAFNESS [None]
  - DRUG ADMINISTRATION ERROR [None]
  - EAR DISCOMFORT [None]
